FAERS Safety Report 7113154-3 (Version None)
Quarter: 2010Q4

REPORT INFORMATION
  Report Type: 
  Country: None (occurrence: None)
  Receive Date: 20101119
  Receipt Date: 20101115
  Transmission Date: 20110411
  Serious: Yes (Death, Hospitalization, Other)
  Sender: FDA-Public Use
  Company Number: JP-ELI_LILLY_AND_COMPANY-JP201006004582

PATIENT
  Sex: Male
  Weight: 48.9 kg

DRUGS (2)
  1. GEMZAR [Suspect]
     Indication: LUNG ADENOCARCINOMA STAGE III
     Dosage: 1000 MG, OTHER
     Route: 042
     Dates: start: 20080215, end: 20080101
  2. GEMZAR [Suspect]
     Dosage: 1000 MG, 2/W
     Route: 042
     Dates: start: 20081024, end: 20090828

REACTIONS (8)
  - CEREBRAL INFARCTION [None]
  - MALIGNANT NEOPLASM PROGRESSION [None]
  - MALIGNANT PLEURAL EFFUSION [None]
  - MENINGITIS BACTERIAL [None]
  - MULTI-ORGAN FAILURE [None]
  - PNEUMONIA [None]
  - SEPTIC SHOCK [None]
  - URINARY TRACT INFECTION [None]
